FAERS Safety Report 5009178-2 (Version None)
Quarter: 2006Q2

REPORT INFORMATION
  Report Type: 
  Country: None (occurrence: None)
  Receive Date: 20060519
  Receipt Date: 20060505
  Transmission Date: 20061013
  Serious: Yes (Life-Threatening, Hospitalization)
  Sender: FDA-Public Use
  Company Number: CLOF-10213

PATIENT
  Age: 12 Year
  Sex: Male

DRUGS (3)
  1. CLOFARABINE [Suspect]
     Indication: ACUTE LYMPHOCYTIC LEUKAEMIA
     Dosage: 52 MG/M2 QD IV
     Route: 042
     Dates: start: 20060213, end: 20060217
  2. LINEZOLID [Concomitant]
  3. CIPROFLOXACIN [Concomitant]

REACTIONS (7)
  - APLASIA [None]
  - BONE MARROW FAILURE [None]
  - INTERSTITIAL LUNG DISEASE [None]
  - NEUTROPENIA [None]
  - PNEUMONIA [None]
  - SEPTIC SHOCK [None]
  - THERAPY NON-RESPONDER [None]
